FAERS Safety Report 12233193 (Version 1)
Quarter: 2016Q2

REPORT INFORMATION
  Report Type: Spontaneous
  Country: US (occurrence: US)
  Receive Date: 20160404
  Receipt Date: 20160404
  Transmission Date: 20160815
  Serious: Yes (Other)
  Sender: FDA-Public Use
  Company Number: US-ROCHE-1735346

PATIENT
  Age: 54 Year
  Sex: Female

DRUGS (1)
  1. RITUXAN [Suspect]
     Active Substance: RITUXIMAB
     Indication: PRODUCT USED FOR UNKNOWN INDICATION
     Dosage: IV DAYS 1 AND 15, INITIATION OF RITUXIMAB INFUSION AT 50MG/HR
     Route: 042
     Dates: start: 20160328

REACTIONS (9)
  - Chest discomfort [Unknown]
  - Injection site extravasation [Unknown]
  - Chest pain [Unknown]
  - Dyspnoea [Unknown]
  - Peripheral coldness [Unknown]
  - Pallor [Unknown]
  - Nausea [Unknown]
  - Dizziness [Unknown]
  - Blood pressure increased [Unknown]

NARRATIVE: CASE EVENT DATE: 20160328
